FAERS Safety Report 22816451 (Version 7)
Quarter: 2025Q2

REPORT INFORMATION
  Report Type: Spontaneous
  Country: IN (occurrence: IN)
  Receive Date: 20230811
  Receipt Date: 20250529
  Transmission Date: 20250717
  Serious: Yes (Death, Hospitalization, Other)
  Sender: PFIZER
  Company Number: IN-PFIZER INC-PV202200093493

PATIENT
  Age: 59 Year
  Sex: Female

DRUGS (7)
  1. DACOMITINIB [Suspect]
     Active Substance: DACOMITINIB
     Indication: Lung adenocarcinoma
     Dosage: 30 MG, 1X/DAY
     Route: 048
     Dates: start: 20221026
  2. RANITIDINE HYDROCHLORIDE [Concomitant]
     Active Substance: RANITIDINE HYDROCHLORIDE
     Indication: Hyperchlorhydria
  3. ACETAMINOPHEN [Concomitant]
     Active Substance: ACETAMINOPHEN
     Indication: Pain
  4. CREMAFFIN PLUS [Concomitant]
     Indication: Constipation
     Dosage: 15 ML, 1X/DAY AT BEDTIME (TO STOP IF LOOSE STOOLS)
  5. CALCIUM CARBONATE\CHOLECALCIFEROL [Concomitant]
     Active Substance: CALCIUM CARBONATE\CHOLECALCIFEROL
     Dosage: 1 DF, 1X/DAY
  6. MEGEETRON [Concomitant]
     Dosage: 160 MG, 1X/DAY
  7. DOXYCYCLINE [Concomitant]
     Active Substance: DOXYCYCLINE
     Dosage: 100 MG, 1X/DAY

REACTIONS (17)
  - Cardiopulmonary failure [Fatal]
  - Diarrhoea [Not Recovered/Not Resolved]
  - Asthenia [Unknown]
  - Fatigue [Unknown]
  - Headache [Unknown]
  - Electrocardiogram QT prolonged [Unknown]
  - Malignant neoplasm progression [Unknown]
  - Lung adenocarcinoma [Unknown]
  - Mucosal inflammation [Unknown]
  - Paronychia [Unknown]
  - Vomiting [Not Recovered/Not Resolved]
  - Rash [Unknown]
  - Body mass index increased [Unknown]
  - Blood creatinine increased [Unknown]
  - Pyrexia [Unknown]
  - Blood pressure increased [Unknown]
  - Off label use [Unknown]

NARRATIVE: CASE EVENT DATE: 20221026
